FAERS Safety Report 6020410-9 (Version None)
Quarter: 2008Q4

REPORT INFORMATION
  Report Type: 
  Country: None (occurrence: None)
  Receive Date: 20081226
  Receipt Date: 20081222
  Transmission Date: 20090506
  Serious: Yes (Other)
  Sender: FDA-Public Use
  Company Number: JP-BRISTOL-MYERS SQUIBB COMPANY-14451371

PATIENT
  Age: 82 Year
  Sex: Male

DRUGS (7)
  1. WARFARIN SODIUM [Interacting]
     Indication: EMBOLISM
     Dosage: 1MG/DAY:19JULY07 2MG/DAY:24JULY07 1.5MG/DAY:30JULY07 1MG/DAY:02AUG07
     Dates: start: 20070314
  2. HEPARIN SODIUM [Interacting]
  3. S-1 [Interacting]
     Dates: start: 20070521
  4. MELOXICAM [Interacting]
  5. OMEPRAZOLE [Interacting]
     Dates: start: 20070707, end: 20070724
  6. RADIOTHERAPY [Suspect]
     Indication: METASTASES TO LYMPH NODES
     Dates: start: 20070706, end: 20070731
  7. GEMCITABINE [Suspect]

REACTIONS (6)
  - DRUG INTERACTION [None]
  - DYSPNOEA [None]
  - GINGIVAL BLEEDING [None]
  - HAEMATURIA [None]
  - INTERNATIONAL NORMALISED RATIO DECREASED [None]
  - INTERNATIONAL NORMALISED RATIO INCREASED [None]
